FAERS Safety Report 9663202 (Version 2)
Quarter: 2013Q4

REPORT INFORMATION
  Report Type: Spontaneous
  Country: US (occurrence: US)
  Receive Date: 20131101
  Receipt Date: 20131114
  Transmission Date: 20140711
  Serious: Yes (Death)
  Sender: FDA-Public Use
  Company Number: US-BIOGENIDEC-2013BI102892

PATIENT
  Sex: Male

DRUGS (6)
  1. AVONEX [Suspect]
     Indication: MULTIPLE SCLEROSIS
     Route: 030
     Dates: start: 2008
  2. AVONEX [Suspect]
     Indication: MULTIPLE SCLEROSIS
     Route: 030
     Dates: start: 20120327
  3. CELEBREX [Concomitant]
  4. CYMBALTA [Concomitant]
  5. HYDROCODONE-ACETAMINOPHEN [Concomitant]
  6. ZYPREXA [Concomitant]

REACTIONS (1)
  - Heart disease congenital [Fatal]
